FAERS Safety Report 20828804 (Version 1)
Quarter: 2022Q2

REPORT INFORMATION
  Report Type: Spontaneous
  Country: US (occurrence: US)
  Receive Date: 20220513
  Receipt Date: 20220513
  Transmission Date: 20220720
  Serious: No
  Sender: FDA-Public Use
  Company Number: US-SA-SAC20220509000240

PATIENT
  Age: 72 Year
  Sex: Female

DRUGS (18)
  1. KEVZARA [Suspect]
     Active Substance: SARILUMAB
     Indication: Pulmonary arterial hypertension
     Dosage: 200 MG, QOW
     Route: 058
     Dates: start: 20210830
  2. FUROSEMIDE [Concomitant]
     Active Substance: FUROSEMIDE
  3. LANSOPRAZOLE [Concomitant]
     Active Substance: LANSOPRAZOLE
  4. OXYBUTYNIN [Concomitant]
     Active Substance: OXYBUTYNIN
  5. ROSUVASTATIN [Concomitant]
     Active Substance: ROSUVASTATIN
  6. SILDENAFIL CITRATE [Concomitant]
     Active Substance: SILDENAFIL CITRATE
  7. FLUOCINONIDE [Concomitant]
     Active Substance: FLUOCINONIDE
  8. SPIRONOLACTONE [Concomitant]
     Active Substance: SPIRONOLACTONE
  9. ALPRAZOLAM [Concomitant]
     Active Substance: ALPRAZOLAM
  10. CEPHALEXIN [Concomitant]
     Active Substance: CEPHALEXIN
  11. DIAZEPAM [Concomitant]
     Active Substance: DIAZEPAM
  12. DULOXETINE [Concomitant]
     Active Substance: DULOXETINE
  13. MECLIZINE [Concomitant]
     Active Substance: MECLIZINE HYDROCHLORIDE
  14. NORCO [Concomitant]
     Active Substance: ACETAMINOPHEN\HYDROCODONE BITARTRATE
  15. TOLTERODINE [Concomitant]
     Active Substance: TOLTERODINE
  16. TRAZODONE [Concomitant]
     Active Substance: TRAZODONE HYDROCHLORIDE
  17. TRAMADOL HCL [Concomitant]
     Active Substance: TRAMADOL HYDROCHLORIDE
  18. CELLCEPT [Concomitant]
     Active Substance: MYCOPHENOLATE MOFETIL

REACTIONS (2)
  - Product dose omission issue [Unknown]
  - Product use in unapproved indication [Unknown]

NARRATIVE: CASE EVENT DATE: 20210830
